FAERS Safety Report 6763593-5 (Version None)
Quarter: 2010Q2

REPORT INFORMATION
  Report Type: 
  Country: None (occurrence: None)
  Receive Date: 20100610
  Receipt Date: 20100604
  Transmission Date: 20101027
  Serious: Yes (Death, Hospitalization, Other)
  Sender: FDA-Public Use
  Company Number: US-ELI_LILLY_AND_COMPANY-US201006001587

PATIENT
  Age: 77 Year
  Sex: Female

DRUGS (2)
  1. HUMALOG [Suspect]
     Indication: DIABETES MELLITUS
     Dosage: UNK, AS NEEDED
  2. LANTUS [Concomitant]

REACTIONS (7)
  - BLADDER CANCER [None]
  - BREAST CANCER [None]
  - CYANOSIS [None]
  - LUNG DISORDER [None]
  - OPEN WOUND [None]
  - OXYGEN SATURATION DECREASED [None]
  - WOUND [None]
